FAERS Safety Report 6202923-X (Version None)
Quarter: 2009Q2

REPORT INFORMATION
  Report Type: 
  Country: None (occurrence: None)
  Receive Date: 20090520
  Receipt Date: 20090511
  Transmission Date: 20091009
  Serious: Yes (Hospitalization)
  Sender: FDA-Public Use
  Company Number: 2009S1008358

PATIENT
  Age: 79 Year
  Sex: Female

DRUGS (5)
  1. ENTECAVIR (ENTECAVIR) [Suspect]
     Indication: HEPATITIS B
     Dosage: 0.3 MG; DAILY; ORAL
     Route: 048
     Dates: start: 20040302
  2. SPIRONOLACTONE [Suspect]
     Dates: end: 20090410
  3. NADOLOL [Concomitant]
  4. PANTOPRAZOLE SODIUM [Concomitant]
  5. BLEPHAMINE /00319491/ [Concomitant]

REACTIONS (4)
  - HYPERKALAEMIA [None]
  - HYPONATRAEMIA [None]
  - PNEUMONIA [None]
  - STAPHYLOCOCCAL INFECTION [None]
